FAERS Safety Report 7437076-3 (Version None)
Quarter: 2011Q2

REPORT INFORMATION
  Report Type: 
  Country: None (occurrence: None)
  Receive Date: 20110426
  Receipt Date: 20110421
  Transmission Date: 20111010
  Serious: Yes (Hospitalization)
  Sender: FDA-Public Use
  Company Number: US-ELI_LILLY_AND_COMPANY-US201104006316

PATIENT
  Sex: Male

DRUGS (28)
  1. AMLODIPINE BESILATE [Concomitant]
     Indication: HYPERTENSION
     Dosage: 20 MG, UNK
     Dates: start: 20070307
  2. OTHER PHARMA COMPANY INV DRUG [Suspect]
     Indication: NEOPLASM
     Dosage: 325 MG, OTHER
     Route: 048
     Dates: start: 20100920
  3. PROCHLORPERAZINE EDISYLATE [Concomitant]
     Indication: NAUSEA
     Dosage: 10 MG, PRN
     Dates: start: 20100920
  4. OXYCODONE HYDROCHLORIDE [Concomitant]
     Indication: NECK PAIN
     Dosage: 20 MG, BID
     Dates: start: 20101004
  5. PREDNISONE [Concomitant]
     Indication: PROPHYLAXIS
     Dosage: UNK, OTHER
     Dates: start: 20110103, end: 20110321
  6. GEMCITABINE HYDROCHLORIDE [Suspect]
     Dosage: 750 MG/M2, OTHER
     Dates: start: 20110207, end: 20110207
  7. ZOLPIDEM TARTRATE [Concomitant]
     Indication: INSOMNIA
     Dosage: 10 MG, PRN
     Dates: start: 20060216
  8. BUDESONIDE [Concomitant]
     Indication: DYSPNOEA
     Dosage: 0.25 MG, UNK
     Dates: start: 20100831
  9. CITALOPRAM HYDROBROMIDE [Concomitant]
     Indication: DEPRESSION
     Dosage: 20 MG, UNK
     Dates: start: 20100702
  10. OMEPRAZOLE [Concomitant]
     Indication: REFLUX OESOPHAGITIS
     Dosage: 20 MG, UNK
     Dates: start: 20100108
  11. GEMCITABINE HYDROCHLORIDE [Suspect]
     Indication: NEOPLASM
     Dosage: 1000 MG/M2, OTHER
     Route: 042
     Dates: start: 20100920, end: 20101213
  12. ALBUTEROL SULFATE AND IPRATROPIUM BROMIDE [Concomitant]
     Indication: DYSPNOEA
     Dosage: 3 MG, UNK
     Route: 055
     Dates: start: 20100813
  13. MAGNESIUM SULFATE [Concomitant]
     Indication: HYPOMAGNESAEMIA
     Dosage: 2 G, PRN
     Dates: start: 20110222
  14. AZITHROMYCIN [Concomitant]
     Indication: NASOPHARYNGITIS
     Dosage: 250 MG, QD
     Dates: start: 20101231, end: 20110103
  15. GEMCITABINE HYDROCHLORIDE [Suspect]
     Dosage: 750 MG/M2, OTHER
     Route: 042
     Dates: start: 20101220, end: 20101220
  16. METOPROLOL TARTRATE [Concomitant]
     Indication: HYPERTENSION
     Dosage: 25 MG, BID
     Dates: start: 20060104
  17. SIMVASTATIN [Concomitant]
     Indication: HYPERTENSION
     Dosage: 20 MG, EACH EVENING
     Dates: start: 20081219
  18. BACTRIM [Concomitant]
     Indication: PROPHYLAXIS
     Dosage: UNK, QD
     Dates: start: 20110222
  19. FUROSEMIDE [Concomitant]
     Indication: OEDEMA PERIPHERAL
     Dosage: 20 MG, UNK
     Dates: start: 20110222
  20. GEMCITABINE HYDROCHLORIDE [Suspect]
     Dosage: 1000 MG/M2, OTHER
     Dates: start: 20110222, end: 20110228
  21. COMBIVENT [Concomitant]
     Indication: DYSPNOEA
     Route: 055
     Dates: start: 20110103
  22. MACROGOL [Concomitant]
     Indication: CONSTIPATION
     Dosage: 117 G, UNK
     Dates: start: 20101004
  23. SODIUM CHLORIDE [Concomitant]
     Indication: DEHYDRATION
     Dosage: 500 ML, PRN
     Route: 042
     Dates: start: 20101012
  24. CLOTRIMAZOL [Concomitant]
     Indication: PROPHYLAXIS
     Dosage: UNK
     Dates: start: 20100903
  25. GEMCITABINE HYDROCHLORIDE [Suspect]
     Dosage: 1000 MG/M2, OTHER
     Route: 042
     Dates: start: 20110103, end: 20110131
  26. OXYCODONE [Concomitant]
     Indication: NECK PAIN
     Dosage: 5 MG, PRN
     Dates: start: 20100920
  27. DEXAMETHASONE PHOSPHATE [Concomitant]
     Indication: NAUSEA
     Dosage: 10 MG, PRN
     Dates: start: 20100920
  28. ONDANSETRON [Concomitant]
     Indication: NAUSEA
     Dosage: 16 MG, PRN
     Dates: start: 20100920

REACTIONS (1)
  - HYPOXIA [None]
